FAERS Safety Report 5888179-6 (Version None)
Quarter: 2008Q3

REPORT INFORMATION
  Report Type: 
  Country: None (occurrence: None)
  Receive Date: 20080918
  Receipt Date: 20080915
  Transmission Date: 20090109
  Serious: Yes (Other)
  Sender: FDA-Public Use
  Company Number: US-ASTRAZENECA-2008UW15405

PATIENT
  Age: 47 Year
  Sex: Female
  Weight: 90.7 kg

DRUGS (20)
  1. SYMBICORT [Suspect]
     Indication: ASTHMA
     Dosage: 160/4.5 UG TWO INHALATIONS TWICE A DAY
     Route: 055
     Dates: start: 20080601, end: 20080801
  2. LEVOTHYROXINE SODIUM [Concomitant]
     Dosage: 50 UG
  3. PRILOSEC OTC [Concomitant]
  4. GABAPENTIN [Concomitant]
  5. MULTI-VITAMIN [Concomitant]
  6. CALCIUM GLUCONATE [Concomitant]
  7. TRIPLE MAGNESIUM COMPLEX [Concomitant]
  8. IRON [Concomitant]
  9. SINGULAIR [Concomitant]
     Indication: ASTHMA
     Route: 048
  10. VITAMIN B COMPLEX CAP [Concomitant]
  11. ASPIRIN [Concomitant]
  12. MELATONIN [Concomitant]
  13. ASCORBIC ACID [Concomitant]
  14. PROMETRIUM [Concomitant]
  15. PAXIL [Concomitant]
     Dosage: 20 MG
  16. CLONAZEPAM [Concomitant]
     Dosage: 2 MG
  17. LORATADINE [Concomitant]
     Dosage: 10 MG
  18. CYTOMEL [Concomitant]
  19. SINEMET [Concomitant]
  20. ALBUTEROL [Concomitant]
     Dosage: ONE TO FOUR TIMES A DAY

REACTIONS (2)
  - MOOD ALTERED [None]
  - SUICIDAL IDEATION [None]
